FAERS Safety Report 12582591 (Version 1)
Quarter: 2016Q3

REPORT INFORMATION
  Report Type: Spontaneous
  Country: KR (occurrence: KR)
  Receive Date: 20160722
  Receipt Date: 20160722
  Transmission Date: 20161109
  Serious: Yes (Death, Other)
  Sender: FDA-Public Use
  Company Number: KR-JNJFOC-20160714204

PATIENT
  Age: 61 Year
  Sex: Male

DRUGS (1)
  1. ZYTIGA [Suspect]
     Active Substance: ABIRATERONE ACETATE
     Indication: PROSTATE CANCER
     Route: 048

REACTIONS (3)
  - Rectal injury [Unknown]
  - Abdominal sepsis [Fatal]
  - Prostate cancer recurrent [Unknown]
